FAERS Safety Report 7782100-1 (Version None)
Quarter: 2011Q3

REPORT INFORMATION
  Report Type: 
  Country: None (occurrence: None)
  Receive Date: 20110927
  Receipt Date: 20110914
  Transmission Date: 20111222
  Serious: Yes (Hospitalization, Other)
  Sender: FDA-Public Use
  Company Number: US-ELI_LILLY_AND_COMPANY-US201002007383

PATIENT
  Sex: Female

DRUGS (11)
  1. LORAZEPAM [Concomitant]
     Dosage: UNK, 6/W
  2. FORTEO [Suspect]
     Indication: OSTEOPOROSIS
     Dosage: 20 UG, DAILY (1/D)
     Route: 065
  3. FORTEO [Suspect]
     Dosage: 20 UG, QD
  4. RESTORIL [Concomitant]
  5. ALLOPURINOL [Concomitant]
     Dosage: 100 MG, DAILY (1/D)
     Route: 065
  6. VITAMIN TAB [Concomitant]
  7. NEXIUM [Concomitant]
     Dosage: 40 MG, DAILY (1/D)
     Route: 065
  8. ARIMIDEX [Concomitant]
  9. FORTEO [Suspect]
     Dosage: 20 UG, QD
  10. EXFORGE [Concomitant]
     Dosage: UNK, DAILY (1/D)
     Route: 065
  11. LORTAB [Concomitant]
     Indication: PAIN
     Dosage: UNK, AS NEEDED
     Route: 065

REACTIONS (8)
  - POST-TRAUMATIC STRESS DISORDER [None]
  - BACK PAIN [None]
  - DIARRHOEA [None]
  - CATARACT OPERATION [None]
  - FLUID RETENTION [None]
  - INTERVERTEBRAL DISC DEGENERATION [None]
  - BREAST CANCER STAGE II [None]
  - BURSITIS [None]
